FAERS Safety Report 7117881-3 (Version None)
Quarter: 2010Q4

REPORT INFORMATION
  Report Type: 
  Country: None (occurrence: None)
  Receive Date: 20101118
  Receipt Date: 20101118
  Transmission Date: 20110411
  Serious: No
  Sender: FDA-Public Use
  Company Number: None

PATIENT
  Sex: Female

DRUGS (19)
  1. METHOTREXATE [Suspect]
     Indication: SKIN DISORDER
     Dosage: 50MG/2ML
     Route: 058
  2. METHOTREXATE [Suspect]
     Indication: SOFT TISSUE DISORDER
     Dosage: 50MG/2ML
     Route: 058
  3. ENBREL [Suspect]
  4. LODINE [Concomitant]
  5. PREDNISONE [Concomitant]
  6. LIPITOR [Concomitant]
  7. ENALAPRIL [Concomitant]
  8. LAMOTRIGINE [Concomitant]
  9. GEMFIBROZIL [Concomitant]
  10. CLONAZEPAM [Concomitant]
  11. GABAPENTIN [Concomitant]
  12. WELLBUTRIN [Concomitant]
  13. METOPROLOL [Concomitant]
  14. NEXIUM [Concomitant]
  15. HYDROCHLOROT [Concomitant]
  16. SEROQUEL [Concomitant]
  17. ESTRADIOL [Concomitant]
  18. UNITHROID [Concomitant]
  19. ZETIA [Concomitant]

REACTIONS (3)
  - INJECTION SITE ANAESTHESIA [None]
  - INJECTION SITE PAIN [None]
  - PRODUCT QUALITY ISSUE [None]
